FAERS Safety Report 23116095 (Version 1)
Quarter: 2023Q4

REPORT INFORMATION
  Report Type: Report from Study
  Country: US (occurrence: US)
  Receive Date: 20231027
  Receipt Date: 20231027
  Transmission Date: 20240110
  Serious: Yes (Other)
  Sender: FDA-Public Use
  Company Number: US-PFIZER INC-202300340525

PATIENT
  Age: 57 Year
  Sex: Female

DRUGS (9)
  1. LORBRENA [Interacting]
     Active Substance: LORLATINIB
     Dosage: 100 MG, DAILY
     Route: 048
     Dates: start: 20221223, end: 20231022
  2. CANNABIDIOL\HERBALS [Interacting]
     Active Substance: CANNABIDIOL\HERBALS
     Dosage: UNK
     Dates: start: 20231020
  3. ASPIRIN [Concomitant]
     Active Substance: ASPIRIN
     Dosage: UNK
  4. FERROUS SULFATE [Concomitant]
     Active Substance: FERROUS SULFATE
     Dosage: UNK
  5. SELENIUM [Concomitant]
     Active Substance: SELENIUM
     Dosage: UNK
  6. VITAMIN B COMPLEX [CALCIUM PANTOTHENATE;NICOTINAMIDE;PYRIDOXINE HYDROC [Concomitant]
     Dosage: UNK
  7. VITAMIN C [Concomitant]
     Active Substance: ASCORBIC ACID
     Dosage: UNK
  8. VITAMIN D NOS [Concomitant]
     Active Substance: VITAMIN D NOS
     Dosage: UNK
  9. ZINC [Concomitant]
     Active Substance: PYRITHIONE ZINC\ZINC\ZINC CHLORIDE
     Dosage: UNK

REACTIONS (4)
  - Drug interaction [Recovered/Resolved]
  - Blood pressure increased [Recovered/Resolved]
  - Paraesthesia [Not Recovered/Not Resolved]
  - Peripheral swelling [Not Recovered/Not Resolved]
